FAERS Safety Report 6723483-0 (Version None)
Quarter: 2010Q2

REPORT INFORMATION
  Report Type: 
  Country: None (occurrence: None)
  Receive Date: 20100513
  Receipt Date: 20100506
  Transmission Date: 20101027
  Serious: Yes (Hospitalization)
  Sender: FDA-Public Use
  Company Number: GB-BRISTOL-MYERS SQUIBB COMPANY-15095623

PATIENT
  Age: 3 Decade
  Sex: Male

DRUGS (2)
  1. REYATAZ [Suspect]
  2. RITONAVIR [Suspect]

REACTIONS (2)
  - HYPERBILIRUBINAEMIA [None]
  - LIVER FUNCTION TEST ABNORMAL [None]
